FAERS Safety Report 8154590-6 (Version None)
Quarter: 2012Q1

REPORT INFORMATION
  Report Type: 
  Country: None (occurrence: None)
  Receive Date: 20120221
  Receipt Date: 20120210
  Transmission Date: 20120608
  Serious: Yes (Hospitalization)
  Sender: FDA-Public Use
  Company Number: FR-ROCHE-1039435

PATIENT
  Sex: Female

DRUGS (5)
  1. CARBOPLATIN [Suspect]
     Indication: OVARIAN CANCER METASTATIC
     Route: 042
     Dates: start: 20120112, end: 20120112
  2. GEMCITABINE [Concomitant]
     Indication: OVARIAN CANCER METASTATIC
  3. POLARAMINE [Concomitant]
     Route: 042
  4. AVASTIN [Suspect]
     Indication: OVARIAN CANCER METASTATIC
     Dosage: 25 MG/ML
     Route: 042
     Dates: start: 20120112, end: 20120112
  5. DEXAMETHASONE SODIUM PHOSPHATE [Suspect]
     Indication: PRODUCT USED FOR UNKNOWN INDICATION
     Route: 042
     Dates: start: 20120112, end: 20120112

REACTIONS (4)
  - MYOCLONUS [None]
  - RASH ERYTHEMATOUS [None]
  - BRONCHOSPASM [None]
  - TACHYCARDIA [None]
